FAERS Safety Report 16695386 (Version 1)
Quarter: 2019Q3

REPORT INFORMATION
  Report Type: Spontaneous
  Country: PT (occurrence: PT)
  Receive Date: 20190813
  Receipt Date: 20190813
  Transmission Date: 20191004
  Serious: Yes (Hospitalization, Other)
  Sender: FDA-Public Use
  Company Number: PT-TEVA-2019-PT-1090278

PATIENT
  Age: 17 Year
  Sex: Female

DRUGS (2)
  1. PROPAFENONE. [Suspect]
     Active Substance: PROPAFENONE
     Dosage: 6G
     Route: 065
  2. IBUPROFEN. [Suspect]
     Active Substance: IBUPROFEN
     Dosage: 1.5G
     Route: 065

REACTIONS (11)
  - Systolic dysfunction [Recovered/Resolved]
  - Generalised tonic-clonic seizure [Recovered/Resolved]
  - Shock [Recovered/Resolved]
  - Ischaemic hepatitis [Recovered/Resolved]
  - Cardio-respiratory arrest [Recovered/Resolved]
  - Acute kidney injury [Recovered/Resolved]
  - Diastolic dysfunction [Recovered/Resolved]
  - Intentional overdose [Unknown]
  - Bradycardia [Recovered/Resolved]
  - Metabolic acidosis [Recovered/Resolved]
  - Enzyme induction [Unknown]
